FAERS Safety Report 13006710 (Version 1)
Quarter: 2016Q4

REPORT INFORMATION
  Report Type: Spontaneous
  Country: US (occurrence: US)
  Receive Date: 20161207
  Receipt Date: 20161207
  Transmission Date: 20170207
  Serious: Yes (Other)
  Sender: FDA-Public Use
  Company Number: US-INDIVIOR LIMITED-INDV-096913-2016

PATIENT
  Age: 29 Year
  Sex: Male

DRUGS (1)
  1. SUBOXONE [Suspect]
     Active Substance: BUPRENORPHINE HYDROCHLORIDE\NALOXONE HYDROCHLORIDE
     Indication: DRUG DEPENDENCE
     Dosage: 6 MG, DAILY
     Route: 060
     Dates: start: 201603

REACTIONS (5)
  - Cough [Unknown]
  - Bronchitis [Unknown]
  - Pneumonia [Unknown]
  - Insomnia [Unknown]
  - Product preparation error [Unknown]

NARRATIVE: CASE EVENT DATE: 201603
